FAERS Safety Report 5487072-0 (Version None)
Quarter: 2007Q4

REPORT INFORMATION
  Report Type: 
  Country: None (occurrence: None)
  Receive Date: 20071016
  Receipt Date: 20071005
  Transmission Date: 20080405
  Serious: Yes (Hospitalization, Other)
  Sender: FDA-Public Use
  Company Number: US-RANBAXY-2007US-10559

PATIENT

DRUGS (10)
  1. VERAPAMIL [Suspect]
     Indication: ATRIAL FIBRILLATION
     Dosage: 80 MG, QD
     Route: 048
     Dates: start: 20070817, end: 20070828
  2. EPIRIZOLE HYDROCHLORIDE [Suspect]
     Indication: MUSCULOSKELETAL STIFFNESS
     Dosage: 50 MG, QD
     Route: 048
     Dates: start: 20070820, end: 20070828
  3. OMEPRAZOLE [Suspect]
     Indication: REFLUX OESOPHAGITIS
     Dosage: 20 MG, QD
     Route: 048
     Dates: start: 20070811, end: 20070828
  4. ALLOPURINOL [Concomitant]
     Indication: HYPERURICAEMIA
     Dosage: 100 MG, QD
  5. ACETYLSALICYLIC ACID [Concomitant]
     Indication: CEREBRAL INFARCTION
  6. FUROSEMIDE [Concomitant]
     Indication: CARDIAC FAILURE
     Dosage: 20 MG, QD
     Route: 048
  7. CANDESARTAN CILEXETIL [Concomitant]
     Indication: HYPERTENSION
     Dosage: 12 MG, QD
     Route: 048
  8. ISOSORBIDE DINITRATE [Concomitant]
     Indication: CARDIAC FAILURE
     Dosage: UNK
     Dates: start: 20070811
  9. DIGOXIN [Concomitant]
     Indication: CARDIAC FAILURE
     Dosage: UNK
     Dates: start: 20070817, end: 20070828
  10. ZOLPIDEM TARTRATE [Concomitant]
     Indication: INSOMNIA
     Dosage: 5 MG, QD
     Dates: start: 20070811, end: 20070828

REACTIONS (6)
  - DRUG ERUPTION [None]
  - ERYTHEMA [None]
  - FACE OEDEMA [None]
  - MOUTH ULCERATION [None]
  - PYREXIA [None]
  - RASH [None]
